FAERS Safety Report 15292144 (Version 1)
Quarter: 2018Q3

REPORT INFORMATION
  Report Type: Spontaneous
  Country: US (occurrence: US)
  Receive Date: 20180806
  Receipt Date: 20180806
  Transmission Date: 20181010
  Serious: Yes (Hospitalization)
  Sender: FDA-Public Use
  Company Number: None

PATIENT
  Age: 4 Week
  Sex: Female
  Weight: 56.7 kg

DRUGS (4)
  1. CELAXA [Concomitant]
  2. AMBIEN [Concomitant]
     Active Substance: ZOLPIDEM TARTRATE
  3. ADDERALL [Concomitant]
     Active Substance: AMPHETAMINE ASPARTATE\AMPHETAMINE SULFATE\DEXTROAMPHETAMINE SACCHARATE\DEXTROAMPHETAMINE SULFATE
  4. MIRENA [Suspect]
     Active Substance: LEVONORGESTREL

REACTIONS (9)
  - Loss of consciousness [None]
  - Pyrexia [None]
  - Nausea [None]
  - Muscle spasms [None]
  - Embedded device [None]
  - Uterine adhesions [None]
  - Bloody discharge [None]
  - Device issue [None]
  - Procedural pain [None]

NARRATIVE: CASE EVENT DATE: 20180801
